FAERS Safety Report 5330187-8 (Version None)
Quarter: 2007Q2

REPORT INFORMATION
  Report Type: 
  Country: None (occurrence: None)
  Receive Date: 20070515
  Receipt Date: 20070502
  Transmission Date: 20071010
  Serious: Yes (Hospitalization)
  Sender: FDA-Public Use
  Company Number: 233552K07USA

PATIENT
  Age: 39 Year
  Sex: Female

DRUGS (2)
  1. REBIF [Suspect]
     Indication: MULTIPLE SCLEROSIS
     Dosage: 44 MCG, 3 IN 1 WEEKS, SUBCUTANEOUS
     Route: 058
     Dates: start: 20040212
  2. AMITRIPTYLINE HCL [Concomitant]

REACTIONS (3)
  - ARTHRITIS INFECTIVE [None]
  - ARTHROPATHY [None]
  - STAPHYLOCOCCAL INFECTION [None]
